FAERS Safety Report 13942554 (Version 2)
Quarter: 2017Q3

REPORT INFORMATION
  Report Type: Spontaneous
  Country: US (occurrence: US)
  Receive Date: 20170906
  Receipt Date: 20170919
  Transmission Date: 20171127
  Serious: Yes (Hospitalization)
  Sender: FDA-Public Use
  Company Number: US-BAYER-2017-168141

PATIENT
  Age: 21 Year
  Sex: Female
  Weight: 51.7 kg

DRUGS (1)
  1. MIRENA [Suspect]
     Active Substance: LEVONORGESTREL
     Dosage: 20 MCG/24HR, CONT
     Route: 015
     Dates: start: 20150911, end: 20160323

REACTIONS (7)
  - Uterine perforation [None]
  - Device difficult to use [None]
  - Device issue [None]
  - Headache [Not Recovered/Not Resolved]
  - Abdominal pain lower [Not Recovered/Not Resolved]
  - Alopecia [Not Recovered/Not Resolved]
  - Menorrhagia [None]

NARRATIVE: CASE EVENT DATE: 20150911
